FAERS Safety Report 5358357-3 (Version None)
Quarter: 2007Q2

REPORT INFORMATION
  Report Type: 
  Country: None (occurrence: None)
  Receive Date: 20070615
  Receipt Date: 20070605
  Transmission Date: 20071010
  Serious: Yes (Hospitalization)
  Sender: FDA-Public Use
  Company Number: JP-JNJFOC-20031102060

PATIENT
  Sex: Female
  Weight: 44 kg

DRUGS (17)
  1. REMICADE [Suspect]
     Route: 042
     Dates: start: 20030819
  2. REMICADE [Suspect]
     Route: 042
     Dates: start: 20030819
  3. REMICADE [Suspect]
     Route: 042
     Dates: start: 20030819
  4. REMICADE [Suspect]
     Route: 042
     Dates: start: 20030819
  5. REMICADE [Suspect]
     Route: 042
     Dates: start: 20030819
  6. REMICADE [Suspect]
     Indication: RHEUMATOID ARTHRITIS
     Route: 042
     Dates: start: 20030819
  7. METHOTREXATE [Concomitant]
     Route: 048
     Dates: start: 19960604
  8. METHOTREXATE [Concomitant]
     Route: 048
     Dates: start: 19960604
  9. METHOTREXATE [Concomitant]
     Indication: RHEUMATOID ARTHRITIS
     Route: 048
     Dates: start: 19960604
  10. PREDNISOLONE [Concomitant]
     Indication: RHEUMATOID ARTHRITIS
     Route: 048
  11. LOXONIN [Concomitant]
     Indication: RHEUMATOID ARTHRITIS
     Route: 048
  12. MINOPEN [Concomitant]
     Indication: RHEUMATOID ARTHRITIS
     Route: 048
  13. FOLIAMIN [Concomitant]
     Route: 048
  14. SELBEX [Concomitant]
     Route: 048
  15. KAMA [Concomitant]
     Route: 048
  16. TAKEPRON [Concomitant]
     Route: 048
  17. FERROMIA [Concomitant]
     Route: 048

REACTIONS (2)
  - ARTHRALGIA [None]
  - JOINT SWELLING [None]
